FAERS Safety Report 19716103 (Version 1)
Quarter: 2021Q3

REPORT INFORMATION
  Report Type: Spontaneous
  Country: US (occurrence: US)
  Receive Date: 20210818
  Receipt Date: 20210818
  Transmission Date: 20211014
  Serious: No
  Sender: FDA-Public Use
  Company Number: US-GLAND PHARMA LIMITED-2020US001154

PATIENT

DRUGS (5)
  1. MIDAZOLAM. [Suspect]
     Active Substance: MIDAZOLAM
     Indication: PRODUCT USED FOR UNKNOWN INDICATION
     Dosage: UNK
     Route: 065
  2. OMNIPAQUE [Suspect]
     Active Substance: IOHEXOL
     Indication: PRODUCT USED FOR UNKNOWN INDICATION
     Route: 065
  3. LIDOCAINE. [Suspect]
     Active Substance: LIDOCAINE
     Indication: PRODUCT USED FOR UNKNOWN INDICATION
     Route: 065
  4. XYLOCAINE PLAIN [Suspect]
     Active Substance: LIDOCAINE HYDROCHLORIDE
     Indication: PRODUCT USED FOR UNKNOWN INDICATION
     Route: 065
  5. DEXAMETHASONE. [Suspect]
     Active Substance: DEXAMETHASONE
     Indication: PRODUCT USED FOR UNKNOWN INDICATION
     Dosage: UNK
     Route: 065

REACTIONS (5)
  - Drug ineffective [Unknown]
  - Product complaint [Unknown]
  - Arthralgia [Unknown]
  - Injection site pain [Unknown]
  - Depressed level of consciousness [Unknown]
